FAERS Safety Report 6232681-4 (Version None)
Quarter: 2009Q2

REPORT INFORMATION
  Report Type: 
  Country: None (occurrence: None)
  Receive Date: 20090612
  Receipt Date: 20090612
  Transmission Date: 20091009
  Serious: Yes (Life-Threatening, Hospitalization)
  Sender: FDA-Public Use
  Company Number: None

PATIENT
  Age: 74 Year
  Sex: Female
  Weight: 47.6 kg

DRUGS (20)
  1. RITUXAN [Suspect]
     Indication: NON-HODGKIN'S LYMPHOMA
     Dosage: EVERY 3 WEEKS
     Dates: start: 20081112, end: 20090401
  2. MIRTAZAPINE [Concomitant]
  3. BETHANECHOL [Concomitant]
  4. SENNA [Concomitant]
  5. ALPRAZOLAM [Concomitant]
  6. ACETAMINOPHEN [Concomitant]
  7. LEVOTHYROXINE SODIUM [Concomitant]
  8. SERTRALINE [Concomitant]
  9. LIDOCAINE [Concomitant]
  10. HYDROCODONE BITARTRATE + ACETAMINOPHEN [Concomitant]
  11. DOCUSATE [Concomitant]
  12. ATORVASTATIN CALCIUM [Concomitant]
  13. K-TAB [Concomitant]
  14. ZOLPIDEM TARTRATE [Concomitant]
  15. MILK OF MAGNESIA TAB [Concomitant]
  16. BISACODYL RECTAL [Concomitant]
  17. LOSARTAN POTASSIUM [Concomitant]
  18. HYDROCHLOROTHIAZIDE [Concomitant]
  19. ENOXAPARIN SODIUM [Concomitant]
  20. AGGRENOX [Concomitant]

REACTIONS (2)
  - ATAXIA [None]
  - PROGRESSIVE MULTIFOCAL LEUKOENCEPHALOPATHY [None]
